FAERS Safety Report 9046709 (Version 1)
Quarter: 2013Q2

REPORT INFORMATION
  Report Type: Spontaneous
  Country: US (occurrence: None)
  Receive Date: 20130128
  Receipt Date: 20130128
  Transmission Date: 20140414
  Serious: Yes (Hospitalization)
  Sender: FDA-Public Use
  Company Number: None

PATIENT
  Age: 27 Year
  Sex: Female
  Weight: 68.9 kg

DRUGS (5)
  1. FASTIN [Suspect]
     Indication: WEIGHT DECREASED
     Route: 048
     Dates: start: 20130122
  2. LEVETIRACETAM [Concomitant]
  3. SERTRALINE [Concomitant]
  4. LANSOPRAZOLE [Concomitant]
  5. DIAZEPAM [Concomitant]

REACTIONS (7)
  - Skin warm [None]
  - Mydriasis [None]
  - Tachycardia [None]
  - Hypotension [None]
  - Nausea [None]
  - Headache [None]
  - Respiratory rate increased [None]
